FAERS Safety Report 7817778 (Version 6)
Quarter: 2018Q3

REPORT INFORMATION
  Report Type: Spontaneous
  Country: NO (occurrence: NO)
  Receive Date: 20110217
  Receipt Date: 20180829
  Transmission Date: 20181010
  Serious: Yes (Death, Hospitalization, Other)
  Sender: FDA-Public Use
  Company Number: NO-PFIZER INC-2011036198

PATIENT
  Age: 76 Year
  Sex: Male

DRUGS (8)
  1. TRACLEER [Interacting]
     Active Substance: BOSENTAN
     Indication: SKIN ULCER
     Dosage: 62.5 MG, BID
     Route: 048
     Dates: start: 20060324, end: 200604
  2. TRACLEER [Interacting]
     Active Substance: BOSENTAN
     Dosage: 125 MG, BID
     Route: 048
     Dates: start: 200604, end: 20110118
  3. TRACLEER [Interacting]
     Active Substance: BOSENTAN
     Dosage: 62.5 MG, BID
     Route: 048
     Dates: start: 20110119, end: 201102
  4. LISINOPRIL. [Concomitant]
     Active Substance: LISINOPRIL
     Indication: CARDIAC FAILURE
     Dosage: 5 MG, 1X/DAY
     Route: 048
  5. ALBYL?E [Concomitant]
     Active Substance: ASPIRIN\MAGNESIUM OXIDE
     Indication: CORONARY ARTERY DISEASE
     Dosage: 75 MG, 1X/DAY
     Route: 048
  6. VIAGRA [Suspect]
     Active Substance: SILDENAFIL CITRATE
     Indication: SKIN ULCER
     Dosage: 25 MG, TID
     Route: 048
     Dates: start: 200604, end: 201102
  7. METFORMIN [Concomitant]
     Active Substance: METFORMIN HYDROCHLORIDE
     Indication: DIABETES MELLITUS
     Dosage: 850 MG, 1X/DAY
     Route: 048
  8. LEVAXIN [Concomitant]
     Active Substance: LEVOTHYROXINE SODIUM
     Indication: HYPERTHYROIDISM
     Dosage: 50 UG, 1X/DAY
     Route: 048

REACTIONS (13)
  - Pleural effusion [Fatal]
  - Abdominal distension [Fatal]
  - Peritonitis bacterial [Fatal]
  - Drug interaction [Fatal]
  - Hepatic cirrhosis [Fatal]
  - Product use in unapproved indication [Unknown]
  - Ascites [Fatal]
  - Inflammation [Fatal]
  - Hepatic failure [Fatal]
  - Hepatic fibrosis [Fatal]
  - Blood alkaline phosphatase increased [Fatal]
  - Gamma-glutamyltransferase increased [Fatal]
  - Cholelithiasis [Fatal]

NARRATIVE: CASE EVENT DATE: 201011
